FAERS Safety Report 9684543 (Version 1)
Quarter: 2013Q4

REPORT INFORMATION
  Report Type: Spontaneous
  Country: ES (occurrence: None)
  Receive Date: 20131108
  Receipt Date: 20131108
  Transmission Date: 20140711
  Serious: Yes (Other)
  Sender: FDA-Public Use
  Company Number: 7247354

PATIENT
  Sex: 0

DRUGS (1)
  1. EUTHYROX [Suspect]
     Indication: PRODUCT USED FOR UNKNOWN INDICATION
     Dosage: PRODUCT TAKEN BY MOTHER

REACTIONS (2)
  - Foetal growth restriction [None]
  - Maternal drugs affecting foetus [None]
